FAERS Safety Report 25999157 (Version 1)
Quarter: 2025Q4

REPORT INFORMATION
  Report Type: Report from Study
  Country: US (occurrence: US)
  Receive Date: 20251105
  Receipt Date: 20251105
  Transmission Date: 20260117
  Serious: Yes (Hospitalization, Other)
  Sender: ACADIA PHARMACEUTICALS
  Company Number: US-ACADIA PHARMACEUTICALS INC.-ACA-2025-PIM-011890

PATIENT
  Age: 83 Year
  Sex: Male

DRUGS (17)
  1. NUPLAZID [Suspect]
     Active Substance: PIMAVANSERIN TARTRATE
     Indication: Parkinson^s disease
     Dosage: 34 MILLIGRAM, QD
     Route: 048
     Dates: start: 20250805, end: 20251028
  2. WARFARIN [Concomitant]
     Active Substance: WARFARIN
  3. MEMANTINE [Concomitant]
     Active Substance: MEMANTINE
  4. PRAMIPEXOLE [Concomitant]
     Active Substance: PRAMIPEXOLE
  5. QUETIAPINE [Concomitant]
     Active Substance: QUETIAPINE
  6. ENTACAPONE [Concomitant]
     Active Substance: ENTACAPONE
  7. POTASSIUM [Concomitant]
     Active Substance: POTASSIUM
  8. METOPROLOL [Concomitant]
     Active Substance: METOPROLOL
     Dosage: EXTENDED-RELEASE
  9. MIDAZOLAM [Concomitant]
     Active Substance: MIDAZOLAM
  10. ASPIRIN [Concomitant]
     Active Substance: ASPIRIN
  11. DEPAKOTE SPRINKLES [Concomitant]
     Active Substance: DIVALPROEX SODIUM
  12. VITAMIN C [Concomitant]
     Active Substance: ASCORBIC ACID
  13. CARBIDOPA\LEVODOPA [Concomitant]
     Active Substance: CARBIDOPA\LEVODOPA
  14. COENZYME Q10 [Concomitant]
     Active Substance: DIETARY SUPPLEMENT\UBIDECARENONE
  15. DUONEB [Concomitant]
     Active Substance: ALBUTEROL SULFATE\IPRATROPIUM BROMIDE
  16. ALBUTEROL [Concomitant]
     Active Substance: ALBUTEROL
  17. CHOLESTYRAMINE [Concomitant]
     Active Substance: CHOLESTYRAMINE

REACTIONS (3)
  - Hallucination [Not Recovered/Not Resolved]
  - Aggression [Not Recovered/Not Resolved]
  - Product dose omission issue [Not Recovered/Not Resolved]

NARRATIVE: CASE EVENT DATE: 20251028
